FAERS Safety Report 8142023-5 (Version None)
Quarter: 2012Q1

REPORT INFORMATION
  Report Type: 
  Country: None (occurrence: None)
  Receive Date: 20120216
  Receipt Date: 20120208
  Transmission Date: 20120608
  Serious: Yes (Hospitalization)
  Sender: FDA-Public Use
  Company Number: FR-ALLERGAN-1113503US

PATIENT
  Age: 71 Year
  Sex: Male

DRUGS (12)
  1. METHOCARBAMOL [Concomitant]
  2. TANAKAN [Concomitant]
  3. TEGRETOL [Concomitant]
  4. BENOXINATE HYDROCHLORIDE [Concomitant]
  5. LODINE [Concomitant]
  6. PHENOBARBITAL TAB [Concomitant]
  7. OZURDEX [Suspect]
     Indication: RETINAL VEIN OCCLUSION
     Dosage: UNK
     Route: 031
     Dates: start: 20110909, end: 20110909
  8. SPIRIVA [Concomitant]
  9. PHENYTOIN SODIUM [Concomitant]
  10. BETADINE [Concomitant]
  11. SOTALOL HCL [Concomitant]
  12. AZITHROMYCIN [Concomitant]

REACTIONS (1)
  - ENDOPHTHALMITIS [None]
